FAERS Safety Report 12390959 (Version 1)
Quarter: 2016Q2

REPORT INFORMATION
  Report Type: Other
  Country: FR (occurrence: FR)
  Receive Date: 20160520
  Receipt Date: 20160520
  Transmission Date: 20160815
  Serious: Yes (Hospitalization)
  Sender: FDA-Public Use
  Company Number: FR-MYLANLABS-2016M1020049

PATIENT

DRUGS (21)
  1. KARDEGIC [Concomitant]
     Active Substance: ASPIRIN LYSINE
     Indication: PRODUCT USED FOR UNKNOWN INDICATION
     Dosage: UNK
     Dates: start: 201404
  2. CISPLATIN MYLAN [Suspect]
     Active Substance: CISPLATIN
     Indication: MESOTHELIOMA
     Dosage: UNK UNK, CYCLE
     Route: 042
     Dates: start: 20151113
  3. ALIMTA [Suspect]
     Active Substance: PEMETREXED DISODIUM
     Dosage: UNK UNK, CYCLE
     Route: 042
     Dates: start: 20151228
  4. AERIUS [Suspect]
     Active Substance: DESLORATADINE
     Indication: RASH
     Dosage: UNK
     Route: 048
     Dates: start: 20160201, end: 20160218
  5. CORTANCYL [Suspect]
     Active Substance: PREDNISONE
     Indication: RASH
     Dosage: UNK
     Route: 048
     Dates: start: 20160209, end: 20160218
  6. ESOMEPRAZOLE [Concomitant]
     Active Substance: ESOMEPRAZOLE
     Indication: PRODUCT USED FOR UNKNOWN INDICATION
     Dosage: 40 MG, UNK
     Dates: start: 20160107
  7. DIAMICRON [Concomitant]
     Active Substance: GLICLAZIDE
     Indication: PRODUCT USED FOR UNKNOWN INDICATION
     Dosage: UNK
     Dates: start: 201210
  8. EMEND [Concomitant]
     Active Substance: APREPITANT
     Indication: ANTIEMETIC SUPPORTIVE CARE
  9. ALIMTA [Suspect]
     Active Substance: PEMETREXED DISODIUM
     Dosage: UNK UNK, CYCLE
     Route: 042
     Dates: start: 20151204
  10. ALIMTA [Suspect]
     Active Substance: PEMETREXED DISODIUM
     Dosage: UNK UNK, CYCLE
     Route: 042
     Dates: start: 20160118
  11. ALIMTA [Suspect]
     Active Substance: PEMETREXED DISODIUM
     Dosage: UNK UNK, CYCLE
     Route: 042
     Dates: start: 20160208
  12. CISPLATIN MYLAN [Suspect]
     Active Substance: CISPLATIN
     Dosage: UNK UNK, CYCLE
     Route: 042
     Dates: start: 20151204
  13. CISPLATIN MYLAN [Suspect]
     Active Substance: CISPLATIN
     Dosage: UNK UNK, CYCLE
     Route: 042
     Dates: start: 20160208
  14. COVERSYL                           /00790702/ [Suspect]
     Active Substance: PERINDOPRIL
     Indication: PRODUCT USED FOR UNKNOWN INDICATION
     Dosage: 1 UNK, UNK
     Route: 048
     Dates: start: 201401, end: 20160214
  15. ASPIRINE PROTECT [Concomitant]
     Active Substance: ASPIRIN
     Indication: PRODUCT USED FOR UNKNOWN INDICATION
     Dosage: UNK
     Dates: start: 20151126
  16. CISPLATIN MYLAN [Suspect]
     Active Substance: CISPLATIN
     Dosage: UNK UNK, CYCLE
     Route: 042
     Dates: start: 20160108
  17. GLUCOPHAGE [Concomitant]
     Active Substance: METFORMIN HYDROCHLORIDE
     Indication: PRODUCT USED FOR UNKNOWN INDICATION
     Dosage: UNK
     Dates: start: 201312
  18. CISPLATIN MYLAN [Suspect]
     Active Substance: CISPLATIN
     Dosage: UNK UNK, CYCLE
     Route: 042
     Dates: start: 20151228
  19. ALIMTA [Suspect]
     Active Substance: PEMETREXED DISODIUM
     Indication: MESOTHELIOMA
     Dosage: UNK UNK, CYCLE
     Route: 042
     Dates: start: 20151113
  20. TEMERIT [Concomitant]
     Active Substance: NEBIVOLOL
     Indication: PRODUCT USED FOR UNKNOWN INDICATION
     Dosage: UNK
     Dates: start: 201402
  21. INEGY [Concomitant]
     Active Substance: EZETIMIBE\SIMVASTATIN
     Indication: PRODUCT USED FOR UNKNOWN INDICATION

REACTIONS (5)
  - Syncope [Unknown]
  - Atrioventricular block complete [Recovered/Resolved]
  - Hypoaldosteronism [Unknown]
  - Rash [Unknown]
  - Hyperkalaemia [Recovering/Resolving]

NARRATIVE: CASE EVENT DATE: 20160108
